FAERS Safety Report 10038420 (Version 1)
Quarter: 2014Q1

REPORT INFORMATION
  Report Type: Report from Study
  Country: ES (occurrence: ES)
  Receive Date: 20140326
  Receipt Date: 20140326
  Transmission Date: 20141002
  Serious: Yes (Other)
  Sender: FDA-Public Use
  Company Number: ES-VERTEX PHARMACEUTICALS INC-2014-001554

PATIENT
  Sex: 0

DRUGS (5)
  1. TELAPREVIR [Suspect]
     Indication: HEPATITIS C
     Route: 048
  2. RIBAVIRIN [Suspect]
     Indication: HEPATITIS C
     Dosage: UNK
     Route: 065
  3. PEG INTERFERON [Suspect]
     Indication: HEPATITIS C
     Dosage: UNK
     Route: 065
  4. RITONAVIR [Concomitant]
     Indication: ANTIVIRAL TREATMENT
     Route: 065
  5. RALTEGRAVIR [Concomitant]
     Indication: ANTIVIRAL TREATMENT
     Dosage: UNK
     Route: 065

REACTIONS (5)
  - Drug intolerance [Unknown]
  - Hepatitis C [Unknown]
  - Neutropenia [Unknown]
  - Thrombocytopenia [Unknown]
  - Anaemia [Unknown]
